FAERS Safety Report 15045732 (Version 2)
Quarter: 2018Q2

REPORT INFORMATION
  Report Type: Spontaneous
  Country: DE (occurrence: DE)
  Receive Date: 20180621
  Receipt Date: 20180628
  Transmission Date: 20180711
  Serious: Yes (Life-Threatening, Hospitalization, Other)
  Sender: FDA-Public Use
  Company Number: DE-009507513-1806DEU006258

PATIENT
  Age: 40 Year
  Sex: Female
  Weight: 76 kg

DRUGS (8)
  1. PEMBROLIZUMAB. [Suspect]
     Active Substance: PEMBROLIZUMAB
     Indication: MALIGNANT MELANOMA
     Dosage: UNK
     Route: 065
     Dates: start: 201710, end: 201802
  2. OPDIVO [Suspect]
     Active Substance: NIVOLUMAB
     Indication: PRODUCT USED FOR UNKNOWN INDICATION
     Dosage: 1 MG/KG, UNK
     Route: 065
     Dates: start: 20170717, end: 2017
  3. OPDIVO [Suspect]
     Active Substance: NIVOLUMAB
     Indication: METASTATIC MALIGNANT MELANOMA
     Dosage: 1 MG/KG, UNK
     Route: 065
     Dates: start: 20170619, end: 2017
  4. YERVOY [Suspect]
     Active Substance: IPILIMUMAB
     Indication: METASTATIC MALIGNANT MELANOMA
     Dosage: 3 MG/KG, UNK
     Route: 065
     Dates: start: 20170717, end: 2017
  5. ACETAMINOPHEN. [Concomitant]
     Active Substance: ACETAMINOPHEN
     Indication: PRODUCT USED FOR UNKNOWN INDICATION
     Dosage: UNK
     Route: 065
  6. YERVOY [Suspect]
     Active Substance: IPILIMUMAB
     Indication: PRODUCT USED FOR UNKNOWN INDICATION
     Dosage: 3 MG/KG, UNK
     Route: 065
     Dates: start: 20170619
  7. ACETAMINOPHEN. [Concomitant]
     Active Substance: ACETAMINOPHEN
     Dosage: UNK
  8. OPDIVO [Suspect]
     Active Substance: NIVOLUMAB
     Indication: MALIGNANT MELANOMA
     Dosage: UNK
     Route: 065
     Dates: start: 201708, end: 201709

REACTIONS (23)
  - Autoimmune dermatitis [Recovering/Resolving]
  - Dry mouth [Not Recovered/Not Resolved]
  - Cheilitis [Recovering/Resolving]
  - Dysphagia [Unknown]
  - Mucosal erosion [Unknown]
  - Autoimmune pancreatitis [Recovering/Resolving]
  - Stevens-Johnson syndrome [Recovering/Resolving]
  - Oedema [Unknown]
  - Skin hyperpigmentation [Unknown]
  - Skin hypopigmentation [Unknown]
  - Thyrotoxic crisis [Not Recovered/Not Resolved]
  - Pancreatitis [Unknown]
  - Pain [Not Recovered/Not Resolved]
  - Pyrexia [Unknown]
  - Restlessness [Not Recovered/Not Resolved]
  - Headache [Unknown]
  - Pneumonitis [Unknown]
  - Obesity [Unknown]
  - Vitiligo [Recovering/Resolving]
  - Autoimmune arthritis [Recovering/Resolving]
  - Autoimmune thyroiditis [Recovering/Resolving]
  - General physical health deterioration [Unknown]
  - Scar [Unknown]

NARRATIVE: CASE EVENT DATE: 20170627
